FAERS Safety Report 25107184 (Version 1)
Quarter: 2025Q1

REPORT INFORMATION
  Report Type: Spontaneous
  Country: US (occurrence: US)
  Receive Date: 20250321
  Receipt Date: 20250321
  Transmission Date: 20250408
  Serious: No
  Sender: EISAI
  Company Number: US-Eisai-EC-2025-185213

PATIENT
  Age: 76 Year
  Sex: Male
  Weight: 100.7 kg

DRUGS (4)
  1. LEQEMBI [Suspect]
     Active Substance: LECANEMAB-IRMB
     Indication: Dementia Alzheimer^s type
     Dates: start: 20250212, end: 20250212
  2. LEQEMBI [Suspect]
     Active Substance: LECANEMAB-IRMB
     Dates: start: 20250312
  3. TOPROL XL [Concomitant]
     Active Substance: METOPROLOL SUCCINATE
     Indication: Product used for unknown indication
  4. LISINOPRIL [Concomitant]
     Active Substance: LISINOPRIL
     Indication: Product used for unknown indication

REACTIONS (7)
  - Chills [Recovered/Resolved]
  - Brain fog [Recovered/Resolved]
  - Asthenia [Recovered/Resolved]
  - Dizziness [Unknown]
  - Fatigue [Recovering/Resolving]
  - Bradycardia [Unknown]
  - Hypotension [Unknown]

NARRATIVE: CASE EVENT DATE: 20250212
